FAERS Safety Report 22238993 (Version 1)
Quarter: 2023Q2

REPORT INFORMATION
  Report Type: Spontaneous
  Country: US (occurrence: US)
  Receive Date: 20230421
  Receipt Date: 20230421
  Transmission Date: 20230722
  Serious: Yes (Other)
  Sender: FDA-Public Use
  Company Number: US-SA-SAC20230420000104

PATIENT
  Sex: Female

DRUGS (1)
  1. DUPIXENT [Suspect]
     Active Substance: DUPILUMAB
     Dosage: 300 MG; OTHER
     Route: 058

REACTIONS (5)
  - Cervical vertebral fracture [Unknown]
  - Vertebrobasilar artery dissection [Unknown]
  - Blood pressure increased [Unknown]
  - Heart rate increased [Unknown]
  - Accident [Unknown]
